FAERS Safety Report 25021221 (Version 5)
Quarter: 2025Q3

REPORT INFORMATION
  Report Type: Spontaneous
  Country: US (occurrence: US)
  Receive Date: 20250228
  Receipt Date: 20250710
  Transmission Date: 20251021
  Serious: No
  Sender: ROCHE
  Company Number: US-ROCHE-10000216736

PATIENT
  Age: 32 Year
  Sex: Female

DRUGS (1)
  1. XOLAIR [Suspect]
     Active Substance: OMALIZUMAB
     Indication: Product used for unknown indication
     Dosage: 45 MINUTES BEFORE OF EVENT, SUSPECT XOLAIR WAS ADMINISTERED
     Route: 065
     Dates: start: 20240501, end: 20240801

REACTIONS (8)
  - Illness [Unknown]
  - Nausea [Unknown]
  - Hypotension [Unknown]
  - Tremor [Unknown]
  - Heart rate increased [Unknown]
  - Palpitations [Unknown]
  - Heart rate decreased [Unknown]
  - Dizziness [Unknown]

NARRATIVE: CASE EVENT DATE: 20241006
